FAERS Safety Report 5735025-7 (Version None)
Quarter: 2008Q2

REPORT INFORMATION
  Report Type: 
  Country: None (occurrence: None)
  Receive Date: 20080512
  Receipt Date: 20080430
  Transmission Date: 20081010
  Serious: Yes (Death, Other)
  Sender: FDA-Public Use
  Company Number: PH-MERCK-0804PHL00018

PATIENT
  Age: 50 Year
  Sex: Female

DRUGS (2)
  1. PRIMAXIN [Suspect]
     Indication: SEPSIS
     Route: 042
     Dates: start: 20080401, end: 20080401
  2. ERTAPENEM SODIUM [Concomitant]
     Indication: PNEUMONIA
     Route: 042
     Dates: start: 20080401, end: 20080401

REACTIONS (2)
  - CONVULSION [None]
  - DEATH [None]
